FAERS Safety Report 8955869 (Version 4)
Quarter: 2013Q2

REPORT INFORMATION
  Report Type: Report from Study
  Country: US (occurrence: US)
  Receive Date: 20121210
  Receipt Date: 20130507
  Transmission Date: 20140414
  Serious: Yes (Hospitalization)
  Sender: FDA-Public Use
  Company Number: US-009507513-1212USA002580

PATIENT
  Age: 56 Year
  Sex: Male
  Weight: 91.79 kg

DRUGS (3)
  1. BOCEPREVIR [Suspect]
     Indication: HEPATITIS C
     Dosage: 2400 MG, QD
     Route: 048
     Dates: start: 20120712
  2. RIBAVIRIN [Suspect]
     Indication: HEPATITIS C
     Dosage: 1200 MG, BID
     Route: 048
     Dates: start: 20120614
  3. PEG-INTRON [Suspect]
     Indication: HEPATITIS C
     Dosage: 2400 MG
     Route: 058
     Dates: start: 20120614

REACTIONS (1)
  - Cellulitis [Recovered/Resolved]
